FAERS Safety Report 5193511-5 (Version None)
Quarter: 2006Q4

REPORT INFORMATION
  Report Type: 
  Country: None (occurrence: None)
  Receive Date: 20061228
  Receipt Date: 20060425
  Transmission Date: 20070319
  Serious: No
  Sender: FDA-Public Use
  Company Number: PAR-3233-AE

PATIENT
  Sex: Female

DRUGS (1)
  1. FLUTICASONE PROPIONATE [Suspect]
     Indication: DRUG USE FOR UNKNOWN INDICATION
     Route: 045
     Dates: end: 20060413

REACTIONS (4)
  - EPISTAXIS [None]
  - HEADACHE [None]
  - NASAL DRYNESS [None]
  - PHARMACEUTICAL PRODUCT COMPLAINT [None]
